FAERS Safety Report 10519319 (Version 3)
Quarter: 2014Q4

REPORT INFORMATION
  Report Type: Spontaneous
  Country: US (occurrence: US)
  Receive Date: 20141015
  Receipt Date: 20141203
  Transmission Date: 20150528
  Serious: Yes (Other)
  Sender: FDA-Public Use
  Company Number: US-JNJFOC-20141006762

PATIENT
  Age: 23 Year
  Sex: Male
  Weight: 72.58 kg

DRUGS (2)
  1. STELARA [Suspect]
     Active Substance: USTEKINUMAB
     Indication: PSORIASIS
     Dosage: WEEK 0, 4, 16 AND THEN EVERY 12 WEEK
     Route: 058
     Dates: start: 20140916, end: 20141007
  2. STELARA [Suspect]
     Active Substance: USTEKINUMAB
     Indication: GUTTATE PSORIASIS
     Dosage: WEEK 0, 4, 16 AND THEN EVERY 12 WEEK
     Route: 058
     Dates: start: 20140916, end: 20141007

REACTIONS (2)
  - Product use issue [Unknown]
  - Chlamydial infection [Recovered/Resolved]

NARRATIVE: CASE EVENT DATE: 20141002
